FAERS Safety Report 9154323 (Version 1)
Quarter: 2013Q1

REPORT INFORMATION
  Report Type: Spontaneous
  Country: IT (occurrence: None)
  Receive Date: 20130207
  Receipt Date: 20130207
  Transmission Date: 20140127
  Serious: Yes (Other)
  Sender: FDA-Public Use
  Company Number: 1584821

PATIENT
  Age: 64 Year
  Sex: Female
  Weight: 58 kg

DRUGS (1)
  1. CARBOPLATIN [Suspect]
     Indication: OVARIAN CANCER
     Dosage: 400 MG MILLIGRAM (S) , CYCLICAL, INTRAVENOUS
     Route: 042
     Dates: start: 20110914, end: 20130116

REACTIONS (5)
  - Feeling hot [None]
  - Agitation [None]
  - Dyspnoea [None]
  - Erythema [None]
  - Hypertension [None]
